FAERS Safety Report 8254993-5 (Version None)
Quarter: 2012Q2

REPORT INFORMATION
  Report Type: 
  Country: None (occurrence: None)
  Receive Date: 20120403
  Receipt Date: 20120327
  Transmission Date: 20120825
  Serious: Yes (Life-Threatening, Hospitalization, Other)
  Sender: FDA-Public Use
  Company Number: GB-ACCORD-012881

PATIENT
  Age: 78 Year
  Sex: Male

DRUGS (3)
  1. FLUCLOXACILLIN [Concomitant]
     Indication: PNEUMONIA
  2. FUSIDIC ACID [Suspect]
     Indication: PNEUMONIA
  3. SIMVASTATIN [Suspect]

REACTIONS (4)
  - POTENTIATING DRUG INTERACTION [None]
  - MYOPATHY [None]
  - CHROMATURIA [None]
  - BLOOD CREATINE PHOSPHOKINASE INCREASED [None]
